FAERS Safety Report 25003080 (Version 1)
Quarter: 2025Q1

REPORT INFORMATION
  Report Type: Report from Study
  Country: CA (occurrence: CA)
  Receive Date: 20250224
  Receipt Date: 20250224
  Transmission Date: 20250409
  Serious: Yes (Other)
  Sender: CELLTRION
  Company Number: CA-CELLTRION INC.-2024CA012752

PATIENT

DRUGS (7)
  1. INFLIXIMAB-DYYB [Suspect]
     Active Substance: INFLIXIMAB-DYYB
     Indication: Crohn^s disease
     Dosage: 120 MG/ML Q2WEEKS/ THERAPY DURATION: 5-6 MONTHS
     Route: 058
     Dates: start: 20240515, end: 20241122
  2. INFLIXIMAB-DYYB [Suspect]
     Active Substance: INFLIXIMAB-DYYB
     Dosage: 120 MG, Q2WEEKS
     Route: 058
     Dates: start: 20241113
  3. INFLIXIMAB-DYYB [Suspect]
     Active Substance: INFLIXIMAB-DYYB
     Dosage: 1 EVERY 2 WEEKS (KIT)
     Route: 058
  4. VITAMIN D NOS [Concomitant]
     Active Substance: CHOLECALCIFEROL\ERGOCALCIFEROL
  5. CYANOCOBALAMIN [Concomitant]
     Active Substance: CYANOCOBALAMIN
  6. ZOPICLONE [Concomitant]
     Active Substance: ZOPICLONE
  7. CYANOCOBALAMIN [Concomitant]
     Active Substance: CYANOCOBALAMIN

REACTIONS (6)
  - COVID-19 [Recovering/Resolving]
  - Eczema [Recovering/Resolving]
  - Dermatitis infected [Recovering/Resolving]
  - Drug hypersensitivity [Not Recovered/Not Resolved]
  - Skin bacterial infection [Recovering/Resolving]
  - Product substitution issue [Not Recovered/Not Resolved]

NARRATIVE: CASE EVENT DATE: 20241115
